FAERS Safety Report 19055234 (Version 1)
Quarter: 2021Q1

REPORT INFORMATION
  Report Type: Spontaneous
  Country: US (occurrence: US)
  Receive Date: 20210325
  Receipt Date: 20210325
  Transmission Date: 20210420
  Serious: No
  Sender: FDA-Public Use
  Company Number: US-CADILA HEALTHCARE LIMITED-US-ZYDUS-051247

PATIENT

DRUGS (2)
  1. LAMOTRIGINE 25 MILLIGRAM TABLET [Suspect]
     Active Substance: LAMOTRIGINE
     Indication: DEPRESSION
     Dosage: 25 MILLIGRAM, QD
     Route: 048
     Dates: start: 2016
  2. LAMOTRIGINE 25 MILLIGRAM TABLET [Suspect]
     Active Substance: LAMOTRIGINE
     Indication: ANXIETY

REACTIONS (2)
  - Pruritus [Recovered/Resolved]
  - Product use in unapproved indication [Recovered/Resolved]

NARRATIVE: CASE EVENT DATE: 2016
